FAERS Safety Report 13577497 (Version 1)
Quarter: 2017Q2

REPORT INFORMATION
  Report Type: Spontaneous
  Country: US (occurrence: US)
  Receive Date: 20170524
  Receipt Date: 20170524
  Transmission Date: 20170830
  Serious: Yes (Hospitalization)
  Sender: FDA-Public Use
  Company Number: None

PATIENT
  Age: 83 Year
  Sex: Male
  Weight: 124.74 kg

DRUGS (1)
  1. WARFARIN [Suspect]
     Active Substance: WARFARIN
     Indication: ATRIAL FLUTTER
     Dates: start: 20110209, end: 20170124

REACTIONS (9)
  - Dyspnoea [None]
  - Chest pain [None]
  - Fatigue [None]
  - Haemorrhage [None]
  - Asthenia [None]
  - Thirst [None]
  - Pollakiuria [None]
  - Faeces discoloured [None]
  - Gastrooesophageal reflux disease [None]

NARRATIVE: CASE EVENT DATE: 20170124
